FAERS Safety Report 10693127 (Version 3)
Quarter: 2015Q1

REPORT INFORMATION
  Report Type: Spontaneous
  Country: BR (occurrence: BR)
  Receive Date: 20150106
  Receipt Date: 20150130
  Transmission Date: 20150720
  Serious: Yes (Other)
  Sender: FDA-Public Use
  Company Number: BR-PFIZER INC-2014362013

PATIENT
  Sex: Male
  Weight: 80 kg

DRUGS (2)
  1. FRONTAL [Suspect]
     Active Substance: ALPRAZOLAM
     Indication: ANXIETY
     Dosage: 0.5 MG, 2X/DAY
     Dates: start: 1975
  2. FRONTAL [Suspect]
     Active Substance: ALPRAZOLAM
     Indication: PANIC DISORDER
     Dosage: 1 MG, 4X/DAY

REACTIONS (2)
  - Hypertension [Recovering/Resolving]
  - Dementia Alzheimer^s type [Recovering/Resolving]

NARRATIVE: CASE EVENT DATE: 2003
